FAERS Safety Report 10166689 (Version 1)
Quarter: 2014Q2

REPORT INFORMATION
  Report Type: Spontaneous
  Country: FR (occurrence: None)
  Receive Date: 20140508
  Receipt Date: 20140508
  Transmission Date: 20141212
  Serious: Yes (Death)
  Sender: FDA-Public Use
  Company Number: 2321431

PATIENT
  Age: 74 Year
  Sex: Male

DRUGS (5)
  1. EPIRUBICIN HYDROCHLORIDE [Suspect]
     Indication: ADENOCARCINOMA GASTRIC
     Route: 041
     Dates: start: 20140314, end: 20140314
  2. OXALIPLATIN [Suspect]
     Indication: ADENOCARCINOMA GASTRIC
     Route: 041
     Dates: start: 20140314, end: 20140314
  3. XELODA [Suspect]
     Indication: ADENOCARCINOMA GASTRIC
     Dosage: (2 CYCLICAL) ?
     Route: 048
     Dates: start: 20140131, end: 20140322
  4. METHYLPREDNISOLONE [Concomitant]
  5. CRESTOR [Concomitant]

REACTIONS (8)
  - Renal failure acute [None]
  - Diarrhoea [None]
  - Dehydration [None]
  - Neuropathy peripheral [None]
  - Hypovolaemia [None]
  - Candida test positive [None]
  - Respiratory disorder [None]
  - Condition aggravated [None]
